FAERS Safety Report 8387597-4 (Version None)
Quarter: 2012Q2

REPORT INFORMATION
  Report Type: 
  Country: None (occurrence: None)
  Receive Date: 20120525
  Receipt Date: 20120523
  Transmission Date: 20120825
  Serious: Yes (Hospitalization, Other)
  Sender: FDA-Public Use
  Company Number: PHHY2009CA35608

PATIENT
  Sex: Female
  Weight: 58.957 kg

DRUGS (4)
  1. SANDOSTATIN LAR [Suspect]
     Indication: PANCREATIC CARCINOMA
     Dosage: 20 MG EVERY 4 WEEKS
     Route: 030
     Dates: start: 20090727
  2. SANDOSTATIN LAR [Suspect]
     Dosage: 20 MG EVERY 4 WEEKS
     Route: 030
     Dates: start: 20090820
  3. SANDOSTATIN LAR [Suspect]
     Dosage: 20 MG, QMO
     Route: 030
  4. CHEMOTHERAPEUTICS NOS [Concomitant]
     Dates: start: 20091123

REACTIONS (23)
  - ABDOMINAL PAIN [None]
  - FATIGUE [None]
  - WEIGHT INCREASED [None]
  - URINARY TRACT INFECTION [None]
  - SUPRAVENTRICULAR TACHYCARDIA [None]
  - BLOOD GLUCOSE INCREASED [None]
  - DYSPNOEA [None]
  - TACHYCARDIA [None]
  - WEIGHT DECREASED [None]
  - MUSCLE SPASMS [None]
  - FLUID RETENTION [None]
  - PAIN [None]
  - PULMONARY OEDEMA [None]
  - PALLOR [None]
  - PULMONARY EMBOLISM [None]
  - NEOPLASM MALIGNANT [None]
  - DYSGEUSIA [None]
  - VOMITING [None]
  - BLOOD PRESSURE DECREASED [None]
  - PAIN IN EXTREMITY [None]
  - BLOOD GLUCOSE ABNORMAL [None]
  - HAEMOGLOBIN DECREASED [None]
  - NASOPHARYNGITIS [None]
